FAERS Safety Report 19424865 (Version 1)
Quarter: 2021Q2

REPORT INFORMATION
  Report Type: Spontaneous
  Country: FR (occurrence: FR)
  Receive Date: 20210616
  Receipt Date: 20210616
  Transmission Date: 20210717
  Serious: Yes (Hospitalization)
  Sender: FDA-Public Use
  Company Number: FR-ASTRAZENECA-2021A508204

PATIENT
  Age: 76 Year
  Sex: Male
  Weight: 75 kg

DRUGS (2)
  1. COMIRNATY [Suspect]
     Active Substance: TOZINAMERAN
     Indication: COVID-19 IMMUNISATION
     Dosage: D21.0DF ONCE/SINGLE ADMINISTRATION
     Route: 030
     Dates: start: 202102, end: 202102
  2. CALQUENCE [Suspect]
     Active Substance: ACALABRUTINIB
     Indication: BRONCHIAL CARCINOMA
     Route: 048

REACTIONS (2)
  - Drug specific antibody absent [Not Recovered/Not Resolved]
  - Vaccination failure [Recovering/Resolving]

NARRATIVE: CASE EVENT DATE: 20210511
